FAERS Safety Report 16848988 (Version 1)
Quarter: 2019Q3

REPORT INFORMATION
  Report Type: Spontaneous
  Country: US (occurrence: US)
  Receive Date: 20190925
  Receipt Date: 20190925
  Transmission Date: 20191005
  Serious: Yes (Life-Threatening, Hospitalization, Other)
  Sender: FDA-Public Use
  Company Number: US-SCIEGEN PHARMACEUTICALS INC-2019SCILIT00262

PATIENT
  Age: 59 Year
  Sex: Male

DRUGS (16)
  1. ALPRAZOLAM. [Suspect]
     Active Substance: ALPRAZOLAM
  2. VILAZODONE [Suspect]
     Active Substance: VILAZODONE
  3. AMITRIPTYLINE [Suspect]
     Active Substance: AMITRIPTYLINE
  4. MIDAZOLAM [Interacting]
     Active Substance: MIDAZOLAM HYDROCHLORIDE
  5. ARIPIPRAZOLE. [Suspect]
     Active Substance: ARIPIPRAZOLE
  6. TRAZODONE [Suspect]
     Active Substance: TRAZODONE HYDROCHLORIDE
  7. COLCHICINE. [Suspect]
     Active Substance: COLCHICINE
  8. ALLOPURINOL. [Suspect]
     Active Substance: ALLOPURINOL
  9. PRAVASTATIN. [Suspect]
     Active Substance: PRAVASTATIN
  10. CYPROHEPTADINE. [Interacting]
     Active Substance: CYPROHEPTADINE
  11. QUETIAPINE. [Suspect]
     Active Substance: QUETIAPINE
  12. NAPROXEN. [Suspect]
     Active Substance: NAPROXEN
  13. FLUOXETINE [Suspect]
     Active Substance: FLUOXETINE HYDROCHLORIDE
  14. IBUPROFEN. [Suspect]
     Active Substance: IBUPROFEN
  15. PROPOFOL. [Interacting]
     Active Substance: PROPOFOL
  16. DEXMEDETOMIDINE. [Interacting]
     Active Substance: DEXMEDETOMIDINE

REACTIONS (3)
  - Serotonin syndrome [Unknown]
  - Overdose [Unknown]
  - Toxicity to various agents [Unknown]
